FAERS Safety Report 8774790 (Version 2)
Quarter: 2012Q4

REPORT INFORMATION
  Report Type: 
  Country: US (occurrence: US)
  Receive Date: 20120910
  Receipt Date: 20120913
  Transmission Date: 20130627
  Serious: No
  Sender: FDA-Public Use
  Company Number: US-PFIZER INC-2012219857

PATIENT
  Age: 70 Year
  Sex: Female
  Weight: 52.15 kg

DRUGS (8)
  1. PRONUTRIENTS PROBIOTICS [Suspect]
     Indication: DYSPEPSIA
     Dosage: 1 DF, daily
     Route: 048
     Dates: start: 201208, end: 201209
  2. PROBIOTICS [Suspect]
     Indication: STAPHYLOCOCCAL INFECTION
     Dosage: UNK
     Route: 048
     Dates: start: 201209, end: 201209
  3. LEVOTHYROXINE SODIUM [Suspect]
     Indication: THYROID DISORDER
     Dosage: 25 ug, UNK
     Route: 048
     Dates: start: 2011
  4. METOPROLOL TARTRATE [Concomitant]
     Indication: HYPERTENSION
     Dosage: 25 mg, 2x/day
  5. METOPROLOL TARTRATE [Concomitant]
     Dosage: UNK
  6. NIFEDIPINE [Concomitant]
     Indication: HYPERTENSION
     Dosage: 30 mg, daily
  7. NIFEDIPINE [Concomitant]
     Dosage: UNK
  8. HYDROCORTISONE [Concomitant]
     Indication: SKIN BACTERIAL INFECTION
     Dosage: UNK

REACTIONS (6)
  - Nervousness [Recovering/Resolving]
  - Fatigue [Recovering/Resolving]
  - Headache [Recovering/Resolving]
  - Malaise [Unknown]
  - Drug intolerance [Unknown]
  - Abdominal pain [Unknown]
